FAERS Safety Report 8361819 (Version 2)
Quarter: 2014Q1

REPORT INFORMATION
  Report Type: Report from Study
  Country: FR (occurrence: FR)
  Receive Date: 20120130
  Receipt Date: 20140312
  Transmission Date: 20141002
  Serious: Yes (Hospitalization)
  Sender: FDA-Public Use
  Company Number: FR-JNJFOC-20120107894

PATIENT
  Age: 2 Decade
  Sex: Female
  Weight: 60 kg

DRUGS (3)
  1. REMICADE [Suspect]
     Indication: COLITIS ULCERATIVE
     Route: 042
     Dates: start: 20110121
  2. METHOTREXATE [Suspect]
     Indication: COLITIS ULCERATIVE
     Route: 058
     Dates: start: 20110105
  3. METHOTREXATE [Suspect]
     Indication: COLITIS ULCERATIVE
     Dosage: TOOK X4
     Route: 058
     Dates: start: 20111111, end: 20111111

REACTIONS (2)
  - Suicide attempt [Recovered/Resolved]
  - Intentional overdose [Recovered/Resolved]
